FAERS Safety Report 9376478 (Version 1)
Quarter: 2013Q2

REPORT INFORMATION
  Report Type: Spontaneous
  Country: US (occurrence: None)
  Receive Date: 20130628
  Receipt Date: 20130628
  Transmission Date: 20140414
  Serious: Yes (Hospitalization, Disabling, Other)
  Sender: FDA-Public Use
  Company Number: None

PATIENT
  Age: 44 Year
  Sex: Male
  Weight: 61.6 kg

DRUGS (2)
  1. HUMIRA [Suspect]
     Indication: COLITIS ULCERATIVE
  2. ADALIMUMAB [Concomitant]

REACTIONS (6)
  - Coccidioidomycosis [None]
  - Acute respiratory failure [None]
  - Herpes simplex [None]
  - Coccidioidomycosis [None]
  - Cytomegalovirus test positive [None]
  - Clostridium difficile colitis [None]
